FAERS Safety Report 15733059 (Version 1)
Quarter: 2018Q4

REPORT INFORMATION
  Report Type: Spontaneous
  Country: CA (occurrence: CA)
  Receive Date: 20181218
  Receipt Date: 20181218
  Transmission Date: 20190205
  Serious: Yes (Congenital Anomaly, Other)
  Sender: FDA-Public Use
  Company Number: CA-APOTEX-2018AP025328

PATIENT

DRUGS (1)
  1. PAXIL [Suspect]
     Active Substance: PAROXETINE HYDROCHLORIDE
     Indication: PRODUCT USED FOR UNKNOWN INDICATION
     Dosage: 20 MG, QD
     Route: 064
     Dates: start: 20040311

REACTIONS (8)
  - Hepatomegaly [Unknown]
  - Angina pectoris [Unknown]
  - Foetal exposure during pregnancy [Unknown]
  - Erythema [Unknown]
  - Skull fracture [Unknown]
  - Heart disease congenital [Unknown]
  - Cardiac murmur [Unknown]
  - Cardiac septal defect [Unknown]

NARRATIVE: CASE EVENT DATE: 20040420
